FAERS Safety Report 6274380-9 (Version None)
Quarter: 2009Q3

REPORT INFORMATION
  Report Type: 
  Country: None (occurrence: None)
  Receive Date: 20090720
  Receipt Date: 20090708
  Transmission Date: 20100115
  Serious: Yes (Other)
  Sender: FDA-Public Use
  Company Number: FR-SANOFI-SYNTHELABO-A02200901773

PATIENT
  Sex: Female

DRUGS (5)
  1. CORDARONE [Concomitant]
     Indication: ATRIAL FIBRILLATION
     Dosage: 1000 MG
     Route: 048
  2. DIGOXIN [Concomitant]
     Indication: ATRIAL FIBRILLATION
     Dosage: 1.25 MG
     Route: 048
  3. SOLUPRED [Suspect]
     Indication: MUSCULAR WEAKNESS
     Dosage: 50 MG
     Route: 048
     Dates: start: 20070701
  4. ARIXTRA [Suspect]
     Indication: MUSCULAR WEAKNESS
     Dosage: UNK
     Route: 042
     Dates: start: 20080404, end: 20080417
  5. STILNOX [Suspect]
     Indication: SLEEP DISORDER
     Route: 048

REACTIONS (1)
  - MYASTHENIA GRAVIS [None]
